FAERS Safety Report 18129830 (Version 1)
Quarter: 2020Q3

REPORT INFORMATION
  Report Type: Spontaneous
  Country: US (occurrence: US)
  Receive Date: 20200807
  Receipt Date: 20200807
  Transmission Date: 20201103
  Serious: Yes (Hospitalization)
  Sender: FDA-Public Use
  Company Number: None

PATIENT
  Age: 59 Year
  Sex: Female

DRUGS (10)
  1. OC=XYCOD/APA [Concomitant]
  2. OMEPRAZOLE. [Concomitant]
     Active Substance: OMEPRAZOLE
  3. ONDANSETRON [Concomitant]
     Active Substance: ONDANSETRON
  4. CRONABINOL [Concomitant]
  5. FAMOTIDINE. [Concomitant]
     Active Substance: FAMOTIDINE
  6. METOPROLOL TARTRATE. [Concomitant]
     Active Substance: METOPROLOL TARTRATE
  7. VERZENIO [Suspect]
     Active Substance: ABEMACICLIB
     Indication: BREAST CANCER FEMALE
     Route: 048
     Dates: start: 20200520
  8. FLUCONAZOLE. [Concomitant]
     Active Substance: FLUCONAZOLE
  9. PROCHLORPER [Concomitant]
  10. FLECAINIDE [Concomitant]
     Active Substance: FLECAINIDE

REACTIONS (1)
  - Hospitalisation [None]
